FAERS Safety Report 4864410-0 (Version None)
Quarter: 2005Q4

REPORT INFORMATION
  Report Type: 
  Country: None (occurrence: None)
  Receive Date: 20051222
  Receipt Date: 20051107
  Transmission Date: 20060501
  Serious: Yes (Hospitalization, Disabling)
  Sender: FDA-Public Use
  Company Number: US-MERCK-0511USA01167

PATIENT
  Age: 59 Year
  Sex: Male
  Weight: 100 kg

DRUGS (3)
  1. VIOXX [Suspect]
     Indication: ARTHRALGIA
     Route: 048
     Dates: start: 20010101, end: 20040601
  2. VIOXX [Suspect]
     Indication: ARTHRITIS
     Route: 048
     Dates: start: 20010101, end: 20040601
  3. VICODIN [Concomitant]
     Route: 065

REACTIONS (5)
  - ARTHROPATHY [None]
  - BACK DISORDER [None]
  - FOOT FRACTURE [None]
  - JOINT SPRAIN [None]
  - MYOCARDIAL INFARCTION [None]
